FAERS Safety Report 8583020-5 (Version None)
Quarter: 2012Q3

REPORT INFORMATION
  Report Type: 
  Country: None (occurrence: None)
  Receive Date: 20120809
  Receipt Date: 20120806
  Transmission Date: 20120928
  Serious: Yes (Death, Other)
  Sender: FDA-Public Use
  Company Number: KR-ELI_LILLY_AND_COMPANY-KR201208002200

PATIENT

DRUGS (2)
  1. CISPLATIN [Concomitant]
     Indication: LUNG ADENOCARCINOMA
     Dosage: 80 MG/M2, ON DAY 1 EVERY THREE WEEKS
  2. GEMCITABINE HYDROCHLORIDE [Suspect]
     Indication: LUNG ADENOCARCINOMA
     Dosage: 1250 MG/M2, ON DAYS 1 AND 8

REACTIONS (1)
  - PULMONARY EMBOLISM [None]
